FAERS Safety Report 18397994 (Version 1)
Quarter: 2020Q4

REPORT INFORMATION
  Report Type: Spontaneous
  Country: JP (occurrence: JP)
  Receive Date: 20201019
  Receipt Date: 20201019
  Transmission Date: 20210114
  Serious: Yes (Other)
  Sender: FDA-Public Use
  Company Number: JP-FERRINGPH-2020FE07159

PATIENT
  Age: 42 Year
  Sex: Female

DRUGS (1)
  1. PROPESS [Suspect]
     Active Substance: DINOPROSTONE
     Indication: LABOUR INDUCTION
     Dosage: 10 MG, ONCE/SINGLE
     Route: 067
     Dates: start: 20201001, end: 20201001

REACTIONS (3)
  - Renal impairment [Unknown]
  - Genital haemorrhage [Recovered/Resolved]
  - Uterine tachysystole [Recovered/Resolved]

NARRATIVE: CASE EVENT DATE: 20201001
